FAERS Safety Report 7917745-9 (Version None)
Quarter: 2011Q4

REPORT INFORMATION
  Report Type: 
  Country: None (occurrence: None)
  Receive Date: 20111116
  Receipt Date: 20111110
  Transmission Date: 20120403
  Serious: Yes (Other)
  Sender: FDA-Public Use
  Company Number: ES-JNJFOC-20111104728

PATIENT
  Sex: Female

DRUGS (1)
  1. STELARA [Suspect]
     Indication: ILL-DEFINED DISORDER
     Route: 058

REACTIONS (1)
  - TUBERCULOSIS [None]
